FAERS Safety Report 5101376-2 (Version None)
Quarter: 2006Q3

REPORT INFORMATION
  Report Type: 
  Country: None (occurrence: None)
  Receive Date: 20060906
  Receipt Date: 20060815
  Transmission Date: 20061208
  Serious: Yes (Other)
  Sender: FDA-Public Use
  Company Number: 2006BH012840

PATIENT
  Age: 64 Year
  Sex: Male

DRUGS (1)
  1. TAZICEF [Suspect]
     Indication: PNEUMONIA
     Dosage: 2 GM; UNK;IV
     Route: 042

REACTIONS (5)
  - AGITATION [None]
  - CONFUSIONAL STATE [None]
  - MYOCLONUS [None]
  - NEUROLOGICAL SYMPTOM [None]
  - STATUS EPILEPTICUS [None]
